FAERS Safety Report 11197129 (Version 2)
Quarter: 2016Q2

REPORT INFORMATION
  Report Type: Spontaneous
  Country: PL (occurrence: PL)
  Receive Date: 20150617
  Receipt Date: 20160502
  Transmission Date: 20160815
  Serious: Yes (Disabling)
  Sender: FDA-Public Use
  Company Number: PL-JNJFOC-20150611270

PATIENT
  Age: 84 Year
  Sex: Male
  Weight: 70 kg

DRUGS (7)
  1. XARELTO [Suspect]
     Active Substance: RIVAROXABAN
     Indication: CEREBROVASCULAR ACCIDENT PROPHYLAXIS
     Dosage: 15 MG, QD
     Route: 048
     Dates: start: 20141014
  2. DIUVER [Concomitant]
     Active Substance: TORSEMIDE
     Indication: CARDIAC FAILURE
     Dosage: 5MG, QD
     Route: 048
  3. SPIRONOL [Concomitant]
     Active Substance: SPIRONOLACTONE
     Dosage: 25MG, UNKNOWN
     Route: 048
  4. POLFILIN [Concomitant]
     Dosage: 400MG, QD
     Route: 048
  5. XARELTO [Suspect]
     Active Substance: RIVAROXABAN
     Indication: ATRIAL FLUTTER
     Dosage: 15 MG, QD
     Route: 048
     Dates: start: 20141014
  6. XARELTO [Suspect]
     Active Substance: RIVAROXABAN
     Indication: ATRIAL FIBRILLATION
     Dosage: 15 MG, QD
     Route: 048
     Dates: start: 20141014
  7. DIGOXIN. [Concomitant]
     Active Substance: DIGOXIN
     Dosage: 0.1MG, QD
     Route: 048

REACTIONS (1)
  - Retinal artery embolism [Recovered/Resolved with Sequelae]

NARRATIVE: CASE EVENT DATE: 20141115
